FAERS Safety Report 18261484 (Version 1)
Quarter: 2020Q3

REPORT INFORMATION
  Report Type: Spontaneous
  Country: BE (occurrence: BE)
  Receive Date: 20200914
  Receipt Date: 20200914
  Transmission Date: 20201103
  Serious: Yes (Other)
  Sender: FDA-Public Use
  Company Number: BE-PFIZER INC-2020351074

PATIENT
  Age: 63 Year
  Sex: Female

DRUGS (5)
  1. VINCRISTINE [Concomitant]
     Active Substance: VINCRISTINE
     Indication: MALIGNANT MELANOMA
     Dosage: UNK, CYCLIC
  2. DOXORUBICIN HCL [Suspect]
     Active Substance: DOXORUBICIN HYDROCHLORIDE
     Indication: MALIGNANT MELANOMA
     Dosage: UNK, CYCLIC
  3. RITUXIMAB. [Concomitant]
     Active Substance: RITUXIMAB
     Indication: MALIGNANT MELANOMA
     Dosage: UNK, CYCLIC
  4. PREDNISONE. [Concomitant]
     Active Substance: PREDNISONE
     Indication: MALIGNANT MELANOMA
     Dosage: UNK, CYCLIC
  5. CYCLOPHOSPHAMIDE. [Concomitant]
     Active Substance: CYCLOPHOSPHAMIDE
     Indication: MALIGNANT MELANOMA
     Dosage: UNK, CYCLIC

REACTIONS (2)
  - Ejection fraction decreased [Recovered/Resolved]
  - Acute pulmonary oedema [Recovered/Resolved]
